FAERS Safety Report 7623287-0 (Version None)
Quarter: 2011Q3

REPORT INFORMATION
  Report Type: 
  Country: None (occurrence: None)
  Receive Date: 20110720
  Receipt Date: 20110713
  Transmission Date: 20111222
  Serious: Yes (Other)
  Sender: FDA-Public Use
  Company Number: CA-PFIZER INC-2011158493

PATIENT
  Sex: Female

DRUGS (4)
  1. XALATAN [Suspect]
     Indication: GLAUCOMA
     Dosage: 1 GTT IN BOTH EYES, 1X/DAY AT NIGHT,
     Route: 047
     Dates: start: 20080101
  2. XALATAN [Suspect]
     Dosage: 1 GTT IN THE RIGHT EYE, 1X/DAY AT NIGHT
     Route: 047
  3. AZOPT [Concomitant]
     Indication: GLAUCOMA
     Dosage: 1 GTT IN THE RIGHT EYE, 3X/DAY
     Route: 047
     Dates: start: 20080101
  4. ISOPTO CARPINE [Concomitant]
     Indication: GLAUCOMA
     Dosage: 1 GTT IN THE RIGHT EYE, 3X/DAY
     Route: 047
     Dates: start: 20080101

REACTIONS (4)
  - VISUAL ACUITY REDUCED [None]
  - INTRAOCULAR PRESSURE INCREASED [None]
  - EYE OPERATION [None]
  - DRUG INEFFECTIVE [None]
